FAERS Safety Report 9428268 (Version 1)
Quarter: 2013Q3

REPORT INFORMATION
  Report Type: Spontaneous
  Country: TR (occurrence: TR)
  Receive Date: 20130730
  Receipt Date: 20130730
  Transmission Date: 20140515
  Serious: Yes (Other)
  Sender: FDA-Public Use
  Company Number: TR-BAYER-2013-091167

PATIENT
  Age: 74 Year
  Sex: Female
  Weight: 80 kg

DRUGS (1)
  1. ULTRAVIST [Suspect]
     Indication: COMPUTERISED TOMOGRAM
     Dosage: 100 ML, ONCE
     Route: 042
     Dates: start: 20130709, end: 20130709

REACTIONS (4)
  - Pruritus [Recovered/Resolved]
  - Eye swelling [Recovered/Resolved]
  - Blister [Recovered/Resolved]
  - Erythema [Recovered/Resolved]
